FAERS Safety Report 6613515-2 (Version None)
Quarter: 2010Q1

REPORT INFORMATION
  Report Type: 
  Country: None (occurrence: None)
  Receive Date: 20100304
  Receipt Date: 20100225
  Transmission Date: 20100710
  Serious: No
  Sender: FDA-Public Use
  Company Number: US-ROXANE LABORATORIES, INC.-2010-RO-00211RO

PATIENT
  Sex: Female

DRUGS (6)
  1. LITHIUM CARBONATE [Suspect]
     Indication: BIPOLAR DISORDER
     Dosage: 1350 MG
  2. LITHIUM CARBONATE [Suspect]
     Dosage: 450 MG
  3. THYROID MEDICATION [Concomitant]
  4. PRAVASTATIN [Concomitant]
  5. CO2 10 [Concomitant]
  6. TOPAMAX [Concomitant]

REACTIONS (14)
  - ASTHENIA [None]
  - CONSTIPATION [None]
  - DIZZINESS [None]
  - DYSPHAGIA [None]
  - HEADACHE [None]
  - NAUSEA [None]
  - PAIN IN EXTREMITY [None]
  - PERIPHERAL COLDNESS [None]
  - POLLAKIURIA [None]
  - RETCHING [None]
  - THIRST [None]
  - THYROID FUNCTION TEST ABNORMAL [None]
  - TREMOR [None]
  - VISION BLURRED [None]
